FAERS Safety Report 5082464-6 (Version None)
Quarter: 2006Q3

REPORT INFORMATION
  Report Type: 
  Country: None (occurrence: None)
  Receive Date: 20060817
  Receipt Date: 20060428
  Transmission Date: 20061208
  Serious: Yes (Hospitalization)
  Sender: FDA-Public Use
  Company Number: 2006SE02474

PATIENT
  Age: 32226 Day
  Sex: Male

DRUGS (16)
  1. ATENOLOL [Suspect]
     Indication: CARDIAC FAILURE
     Route: 048
     Dates: start: 19930101, end: 20060407
  2. E2020 [Suspect]
     Indication: DEMENTIA ALZHEIMER'S TYPE
     Route: 048
     Dates: start: 20040427
  3. MEMANTINE HCL [Concomitant]
     Indication: AMNESIA
     Route: 048
     Dates: start: 20040601
  4. TOCOPHEROL CONCENTRATE CAP [Concomitant]
     Indication: PROPHYLAXIS
     Route: 048
     Dates: start: 20030101
  5. PSYLLIUM HYDROPHILIC MUCILLOID [Concomitant]
     Indication: CONSTIPATION
     Route: 048
     Dates: start: 20060221
  6. VALSARTAN [Concomitant]
     Indication: HYPERTENSION
     Route: 048
     Dates: start: 20020801, end: 20060407
  7. VALSARTAN [Concomitant]
     Route: 048
     Dates: start: 20060408
  8. CENTRUM SILVER [Concomitant]
     Indication: PROPHYLAXIS
     Route: 048
     Dates: start: 20030101
  9. LOTRIMIN [Concomitant]
     Indication: FUNGAL INFECTION
     Route: 048
     Dates: start: 20060222
  10. LAMISIL [Concomitant]
     Indication: FUNGAL INFECTION
     Route: 048
     Dates: start: 20060222
  11. COLACE [Concomitant]
     Indication: CONSTIPATION
     Route: 048
     Dates: start: 20060407
  12. CLARITIN [Concomitant]
     Indication: HYPERSENSITIVITY
     Route: 048
     Dates: start: 20060407
  13. ZOCOR [Concomitant]
     Indication: BLOOD CHOLESTEROL INCREASED
     Route: 048
     Dates: start: 20060407
  14. ACETYLSALICYLIC ACID SRT [Concomitant]
     Route: 048
     Dates: start: 20060407
  15. ZYRTEC [Concomitant]
     Indication: HYPERSENSITIVITY
     Route: 048
     Dates: end: 20060407
  16. INVESTIGATIONAL DRUG [Concomitant]
     Indication: DEMENTIA ALZHEIMER'S TYPE
     Route: 048

REACTIONS (2)
  - FALL [None]
  - SYNCOPE [None]
